FAERS Safety Report 9129965 (Version 2)
Quarter: 2013Q2

REPORT INFORMATION
  Report Type: Spontaneous
  Country: IE (occurrence: IE)
  Receive Date: 20130228
  Receipt Date: 20130410
  Transmission Date: 20140414
  Serious: Yes (Death, Other)
  Sender: FDA-Public Use
  Company Number: PHFR2008IE00772

PATIENT
  Age: 56 Year
  Sex: Female
  Weight: 95.24 kg

DRUGS (4)
  1. CLOZARIL [Suspect]
     Indication: SCHIZOPHRENIA
     Dosage: 250 MG, DAILY
     Route: 048
     Dates: start: 19980924, end: 20080201
  2. SOLIAN [Concomitant]
     Indication: DRUG LEVEL
     Dosage: UNK, BID
     Route: 048
     Dates: start: 200511, end: 20080201
  3. EPILIM CHRONO [Concomitant]
     Indication: DRUG LEVEL INCREASED
     Dosage: 300 MG, BID
     Route: 048
     Dates: start: 200211, end: 20080201
  4. STILNOCT [Concomitant]
     Indication: DRUG LEVEL ABOVE THERAPEUTIC
     Dosage: UNK UKN, UNK
     Route: 048
     Dates: end: 20080201

REACTIONS (12)
  - Pulmonary embolism [Fatal]
  - Right ventricular failure [Fatal]
  - Dyspnoea [Unknown]
  - Hypotension [Unknown]
  - Dizziness [Unknown]
  - Constipation [Unknown]
  - Intestinal infarction [Unknown]
  - Volvulus [Unknown]
  - Abdominal distension [Unknown]
  - Malaise [Unknown]
  - Pain [Unknown]
  - Gastrointestinal necrosis [Unknown]
